FAERS Safety Report 8454661-0 (Version None)
Quarter: 2012Q2

REPORT INFORMATION
  Report Type: 
  Country: None (occurrence: None)
  Receive Date: 20120615
  Receipt Date: 20120615
  Transmission Date: 20120825
  Serious: Yes (Other)
  Sender: FDA-Public Use
  Company Number: None

PATIENT
  Age: 50 Year
  Sex: Female
  Weight: 63.5036 kg

DRUGS (10)
  1. LISINOPRIL [Concomitant]
  2. SYNTHROID [Concomitant]
  3. WELLBUTRIN [Concomitant]
  4. NUVIGIL [Suspect]
     Indication: SOMNOLENCE
     Dosage: 150 MG QD PO
     Route: 048
     Dates: start: 20120609, end: 20120612
  5. INSULIN [Concomitant]
  6. PRISTIQ [Concomitant]
  7. VALIUM [Concomitant]
  8. SKELAXIN [Concomitant]
  9. SIMVASTATIN [Concomitant]
  10. AMBIEN [Concomitant]

REACTIONS (10)
  - TREMOR [None]
  - AFFECT LABILITY [None]
  - COMMUNICATION DISORDER [None]
  - DYSKINESIA [None]
  - FEAR [None]
  - CONFUSIONAL STATE [None]
  - DISORIENTATION [None]
  - TACHYPHRENIA [None]
  - PALPITATIONS [None]
  - AGITATION [None]
